FAERS Safety Report 10869812 (Version 2)
Quarter: 2015Q1

REPORT INFORMATION
  Report Type: Spontaneous
  Country: DK (occurrence: DK)
  Receive Date: 20150226
  Receipt Date: 20150304
  Transmission Date: 20150721
  Serious: Yes (Hospitalization)
  Sender: FDA-Public Use
  Company Number: DK-AUROBINDO-AUR-APL-2015-01552

PATIENT
  Age: 58 Year
  Sex: Female

DRUGS (3)
  1. TRILEPTAL [Suspect]
     Active Substance: OXCARBAZEPINE
     Indication: PRODUCT USED FOR UNKNOWN INDICATION
     Dosage: UNK
     Route: 065
  2. LYRICA [Suspect]
     Active Substance: PREGABALIN
     Indication: PRODUCT USED FOR UNKNOWN INDICATION
     Dosage: UNK
     Route: 065
  3. SERTRALINE [Suspect]
     Active Substance: SERTRALINE HYDROCHLORIDE
     Indication: PRODUCT USED FOR UNKNOWN INDICATION
     Dosage: UNK
     Route: 048

REACTIONS (16)
  - Syncope [Recovered/Resolved]
  - Spinal compression fracture [Unknown]
  - Chest pain [Unknown]
  - Pain in extremity [Recovered/Resolved]
  - Lethargy [Unknown]
  - Musculoskeletal pain [Recovered/Resolved]
  - Dysphonia [Unknown]
  - Hyponatraemia [Unknown]
  - Paraesthesia [Unknown]
  - Dizziness [Unknown]
  - Pneumonia [Unknown]
  - Decubitus ulcer [Unknown]
  - Contusion [Unknown]
  - Balance disorder [Unknown]
  - Fall [Recovered/Resolved]
  - Dislocation of vertebra [Unknown]

NARRATIVE: CASE EVENT DATE: 201311
